FAERS Safety Report 5881942-7 (Version None)
Quarter: 2008Q3

REPORT INFORMATION
  Report Type: 
  Country: None (occurrence: None)
  Receive Date: 20080912
  Receipt Date: 20080715
  Transmission Date: 20090109
  Serious: No
  Sender: FDA-Public Use
  Company Number: US-ABBOTT-08P-163-0463229-00

PATIENT
  Sex: Male
  Weight: 83.99 kg

DRUGS (3)
  1. HUMIRA [Suspect]
     Indication: PSORIASIS
     Route: 050
     Dates: start: 20080301
  2. CLOTRIMAZOLE [Concomitant]
     Indication: PSORIASIS
     Route: 061
  3. NAFTIFINE HYDROCHLORIDE [Concomitant]
     Indication: PSORIASIS
     Route: 061

REACTIONS (1)
  - OVERDOSE [None]
